FAERS Safety Report 9858766 (Version 2)
Quarter: 2014Q2

REPORT INFORMATION
  Report Type: Spontaneous
  Country: US (occurrence: US)
  Receive Date: 20140131
  Receipt Date: 20140414
  Transmission Date: 20141212
  Serious: Yes (Other)
  Sender: FDA-Public Use
  Company Number: US-ELI_LILLY_AND_COMPANY-US201401008126

PATIENT
  Age: 79 Year
  Sex: Male
  Weight: 100.68 kg

DRUGS (3)
  1. HUMALOG 25% LISPRO, 75% NPL [Suspect]
     Indication: TYPE 2 DIABETES MELLITUS
     Dosage: 40 U, TID
     Route: 058
     Dates: start: 20130612, end: 20140206
  2. HUMALOG 25% LISPRO, 75% NPL [Suspect]
     Dosage: 15 U, UNKNOWN
     Route: 058
  3. LANTUS [Concomitant]
     Dosage: 80 U, UNKNOWN
     Route: 065

REACTIONS (6)
  - Retinal detachment [Recovered/Resolved]
  - Visual impairment [Recovered/Resolved]
  - Blood glucose increased [Recovered/Resolved]
  - Lacrimation increased [Unknown]
  - Rhinorrhoea [Unknown]
  - Underdose [Recovered/Resolved]
